FAERS Safety Report 21931367 (Version 2)
Quarter: 2023Q1

REPORT INFORMATION
  Report Type: Spontaneous
  Country: US (occurrence: US)
  Receive Date: 20230131
  Receipt Date: 20230313
  Transmission Date: 20230417
  Serious: No
  Sender: FDA-Public Use
  Company Number: US-BAYER-2023A008778

PATIENT
  Age: 61 Year
  Sex: Female

DRUGS (1)
  1. CLIMARA PRO [Suspect]
     Active Substance: ESTRADIOL\LEVONORGESTREL

REACTIONS (3)
  - Device adhesion issue [None]
  - Headache [None]
  - Device defective [None]

NARRATIVE: CASE EVENT DATE: 20230117
